FAERS Safety Report 7120251-5 (Version None)
Quarter: 2010Q4

REPORT INFORMATION
  Report Type: 
  Country: None (occurrence: None)
  Receive Date: 20101123
  Receipt Date: 20101117
  Transmission Date: 20110411
  Serious: Yes (Hospitalization, Other)
  Sender: FDA-Public Use
  Company Number: US-MERCK-0712USA03812

PATIENT
  Age: 65 Year
  Sex: Female
  Weight: 102 kg

DRUGS (1)
  1. FOSAMAX [Suspect]
     Indication: OSTEOPOROSIS
     Route: 048
     Dates: start: 20020523, end: 20071001

REACTIONS (29)
  - ABDOMINAL PAIN UPPER [None]
  - ABSCESS ORAL [None]
  - ACTINOMYCOSIS [None]
  - ARTHROPATHY [None]
  - BLOOD PRESSURE INCREASED [None]
  - BRONCHITIS CHRONIC [None]
  - BUNDLE BRANCH BLOCK RIGHT [None]
  - BUNION [None]
  - CELLULITIS [None]
  - CHOLELITHIASIS [None]
  - DIZZINESS [None]
  - FATIGUE [None]
  - FOOT DEFORMITY [None]
  - GALLBLADDER DISORDER [None]
  - GASTROOESOPHAGEAL REFLUX DISEASE [None]
  - HEADACHE [None]
  - HYPERLIPIDAEMIA [None]
  - HYPERTROPHIC CARDIOMYOPATHY [None]
  - LEFT VENTRICULAR HYPERTROPHY [None]
  - MITRAL VALVE INCOMPETENCE [None]
  - OEDEMA PERIPHERAL [None]
  - OSTEOMYELITIS [None]
  - OSTEONECROSIS OF JAW [None]
  - PAIN IN EXTREMITY [None]
  - SINUS CONGESTION [None]
  - TOOTH LOSS [None]
  - TRICUSPID VALVE INCOMPETENCE [None]
  - TUBERCULIN TEST POSITIVE [None]
  - WEIGHT DECREASED [None]
